FAERS Safety Report 10883078 (Version 1)
Quarter: 2015Q1

REPORT INFORMATION
  Report Type: Spontaneous
  Country: FR (occurrence: FR)
  Receive Date: 20150303
  Receipt Date: 20150303
  Transmission Date: 20150721
  Serious: Yes (Hospitalization, Other)
  Sender: FDA-Public Use
  Company Number: FR-GLAXOSMITHKLINE-FR2015GSK026147

PATIENT
  Age: 65 Year
  Sex: Male

DRUGS (9)
  1. MELPHALAN [Suspect]
     Active Substance: MELPHALAN
     Indication: TRANSPLANT
     Dosage: 360 MG, QD
     Route: 042
     Dates: start: 20150209, end: 20150209
  2. ZELITREX [Concomitant]
     Active Substance: VALACYCLOVIR HYDROCHLORIDE
  3. ORACILLINE [Concomitant]
     Active Substance: PENICILLIN V
  4. ZOPHREN [Suspect]
     Active Substance: ONDANSETRON
     Indication: PRODUCT USED FOR UNKNOWN INDICATION
     Dosage: 8 MG, BID
     Route: 042
     Dates: start: 20150209, end: 20150209
  5. WELLVONE [Concomitant]
     Active Substance: ATOVAQUONE
  6. KEPPRA [Concomitant]
     Active Substance: LEVETIRACETAM
  7. EMEND [Suspect]
     Active Substance: APREPITANT
     Indication: PRODUCT USED FOR UNKNOWN INDICATION
     Dosage: UNK
     Route: 048
     Dates: start: 20150208, end: 20150210
  8. FORLAX [Concomitant]
     Active Substance: POLYETHYLENE GLYCOL 4000
  9. INNOHEP [Concomitant]
     Active Substance: TINZAPARIN SODIUM

REACTIONS (1)
  - Temporal lobe epilepsy [Recovered/Resolved]

NARRATIVE: CASE EVENT DATE: 20150210
